FAERS Safety Report 13957130 (Version 5)
Quarter: 2017Q4

REPORT INFORMATION
  Report Type: Spontaneous
  Country: US (occurrence: US)
  Receive Date: 20170911
  Receipt Date: 20171110
  Transmission Date: 20180320
  Serious: No
  Sender: FDA-Public Use
  Company Number: US-PFIZER INC-2017393380

PATIENT
  Age: 54 Year
  Sex: Female

DRUGS (3)
  1. EUCRISA [Suspect]
     Active Substance: CRISABOROLE
     Indication: ECZEMA
     Dosage: ALTERNATE WEEKS [2X PER DAY 1 WEEK ON 1 WEEK OFF]
     Dates: start: 20170828
  2. HYDROCORTISONE. [Concomitant]
     Active Substance: HYDROCORTISONE
     Dosage: ALTERNATE WEEKS (ON THE OFF WEEK OF EUCRISA)
     Dates: start: 20170821
  3. EUCRISA [Suspect]
     Active Substance: CRISABOROLE
     Indication: ECZEMA EYELIDS

REACTIONS (1)
  - Drug ineffective [Recovered/Resolved]

NARRATIVE: CASE EVENT DATE: 20170828
